FAERS Safety Report 14160841 (Version 1)
Quarter: 2017Q4

REPORT INFORMATION
  Report Type: Spontaneous
  Country: US (occurrence: US)
  Receive Date: 20171106
  Receipt Date: 20171106
  Transmission Date: 20180321
  Serious: No
  Sender: FDA-Public Use
  Company Number: US-PFIZER INC-2017475760

PATIENT
  Age: 65 Year
  Sex: Female

DRUGS (7)
  1. LOSARTAN POT [Concomitant]
     Active Substance: LOSARTAN POTASSIUM
     Dosage: UNK (50-12.5 M)
  2. METFORMIN HC [Concomitant]
     Active Substance: METFORMIN HYDROCHLORIDE
     Dosage: 1000 MG, UNK
  3. LETROZOLE. [Concomitant]
     Active Substance: LETROZOLE
     Dosage: 2.5 MG, UNK
  4. IBRANCE [Suspect]
     Active Substance: PALBOCICLIB
     Indication: BREAST CANCER FEMALE
     Dosage: 100 MG, CYCLIC (TAKE ONE CAPSULE ONCE DAILY WITH FOOD FOR 21 DAYS, THEN 7 DAYS OFF)
     Route: 048
     Dates: start: 20170622
  5. NOVOLIN R [Concomitant]
     Active Substance: INSULIN HUMAN
     Dosage: 100 IU/ML, UNK
  6. ATORVASTATIN [Concomitant]
     Active Substance: ATORVASTATIN
     Dosage: 20 MG, UNK
  7. NOVOLIN [Concomitant]
     Active Substance: INSULIN HUMAN
     Dosage: UNK (70/3 SUS (70-30))

REACTIONS (1)
  - Renal disorder [Unknown]
